FAERS Safety Report 16771006 (Version 1)
Quarter: 2019Q3

REPORT INFORMATION
  Report Type: Spontaneous
  Country: GB (occurrence: GB)
  Receive Date: 20190904
  Receipt Date: 20190904
  Transmission Date: 20191005
  Serious: Yes (Disabling, Other)
  Sender: FDA-Public Use
  Company Number: GB-ELI_LILLY_AND_COMPANY-GB201908011034

PATIENT
  Age: 30 Year
  Sex: Female
  Weight: 60 kg

DRUGS (1)
  1. ZYPREXA [Suspect]
     Active Substance: OLANZAPINE
     Indication: BIPOLAR DISORDER
     Dosage: 10 MG, UNKNOWN
     Route: 048
     Dates: start: 19980605, end: 20140507

REACTIONS (8)
  - Epilepsy [Not Recovered/Not Resolved]
  - Diabetes mellitus [Unknown]
  - Burning sensation [Unknown]
  - Tic [Not Recovered/Not Resolved]
  - Feeling abnormal [Unknown]
  - Apoptosis [Unknown]
  - Pancreatic disorder [Not Recovered/Not Resolved]
  - Liver injury [Not Recovered/Not Resolved]

NARRATIVE: CASE EVENT DATE: 20100403
